FAERS Safety Report 21613666 (Version 2)
Quarter: 2023Q2

REPORT INFORMATION
  Report Type: Report from Study
  Country: US (occurrence: US)
  Receive Date: 20221118
  Receipt Date: 20230509
  Transmission Date: 20230722
  Serious: No
  Sender: FDA-Public Use
  Company Number: US-ABBVIE-4158154

PATIENT
  Age: 70 Year
  Sex: Female

DRUGS (1)
  1. HUMIRA [Suspect]
     Active Substance: ADALIMUMAB
     Indication: Crohn^s disease
     Dosage: CITRATE FREE ?FORM STRENGTH: 40 MG
     Route: 058
     Dates: start: 20220502

REACTIONS (7)
  - Depression [Unknown]
  - Chronic obstructive pulmonary disease [Unknown]
  - Weight increased [Not Recovered/Not Resolved]
  - Nasopharyngitis [Unknown]
  - Asthma [Unknown]
  - Appetite disorder [Unknown]
  - Stress [Unknown]

NARRATIVE: CASE EVENT DATE: 20221218
